FAERS Safety Report 13464748 (Version 1)
Quarter: 2017Q2

REPORT INFORMATION
  Report Type: Report from Study
  Country: US (occurrence: US)
  Receive Date: 20170420
  Receipt Date: 20170420
  Transmission Date: 20170830
  Serious: Yes (Death)
  Sender: FDA-Public Use
  Company Number: US-EXELIXIS-CABO-17008920

PATIENT
  Age: 48 Year
  Sex: Male
  Weight: 81.63 kg

DRUGS (24)
  1. TERBINAFINE. [Concomitant]
     Active Substance: TERBINAFINE
  2. AZITHROMYCIN ANHYDROUS. [Concomitant]
     Active Substance: AZITHROMYCIN ANHYDROUS
  3. KIONEX [Concomitant]
     Active Substance: SODIUM POLYSTYRENE SULFONATE
  4. FUROSEMIDE. [Concomitant]
     Active Substance: FUROSEMIDE
  5. PROCHLORPERAZINE. [Concomitant]
     Active Substance: PROCHLORPERAZINE
  6. OMEPRAZOLE. [Concomitant]
     Active Substance: OMEPRAZOLE
  7. LORAZEPAM. [Concomitant]
     Active Substance: LORAZEPAM
  8. OXYCONTIN [Concomitant]
     Active Substance: OXYCODONE HYDROCHLORIDE
  9. ONDANSETRON [Concomitant]
     Active Substance: ONDANSETRON
  10. ZOLPIDEM [Concomitant]
     Active Substance: ZOLPIDEM\ZOLPIDEM TARTRATE
  11. RENAGEL [Concomitant]
     Active Substance: SEVELAMER HYDROCHLORIDE
  12. COLLAGENASE SANTYL [Concomitant]
     Active Substance: COLLAGENASE CLOSTRIDIUM HISTOLYTICUM
  13. BOUDREAUXS BUTT [Concomitant]
  14. DEXAMETHASONE. [Concomitant]
     Active Substance: DEXAMETHASONE
  15. SODIUM POLYSTYRENE SULFONATE. [Concomitant]
     Active Substance: SODIUM POLYSTYRENE SULFONATE
  16. DOC-Q-LAX [Concomitant]
  17. CABOMETYX [Suspect]
     Active Substance: CABOZANTINIB S-MALATE
     Indication: RENAL CELL CARCINOMA
     Dosage: 40 MG, QD
     Route: 048
     Dates: start: 20161223
  18. LEVOTHYROXINE. [Concomitant]
     Active Substance: LEVOTHYROXINE
  19. CLOTRIMAZOLE AND BETAMETHASONE [Concomitant]
     Active Substance: BETAMETHASONE\CLOTRIMAZOLE
  20. BUMETANIDE. [Concomitant]
     Active Substance: BUMETANIDE
  21. OLANZAPINE. [Concomitant]
     Active Substance: OLANZAPINE
  22. BACTRIM [Concomitant]
     Active Substance: SULFAMETHOXAZOLE\TRIMETHOPRIM
  23. NYSTATIN. [Concomitant]
     Active Substance: NYSTATIN
  24. CIPROFLOXACIN. [Concomitant]
     Active Substance: CIPROFLOXACIN

REACTIONS (1)
  - Death [Fatal]

NARRATIVE: CASE EVENT DATE: 20170414
